FAERS Safety Report 22522856 (Version 1)
Quarter: 2023Q2

REPORT INFORMATION
  Report Type: Report from Study
  Country: BR (occurrence: BR)
  Receive Date: 20230605
  Receipt Date: 20230605
  Transmission Date: 20230722
  Serious: Yes (Death, Hospitalization)
  Sender: FDA-Public Use
  Company Number: BR-BIOGEN-2023BI01208571

PATIENT
  Age: 52 Year
  Sex: Male
  Weight: 82 kg

DRUGS (3)
  1. TYSABRI [Suspect]
     Active Substance: NATALIZUMAB
     Indication: Multiple sclerosis
     Route: 050
     Dates: start: 20200701, end: 20230410
  2. VITAMIN D [Concomitant]
     Active Substance: VITAMIN D NOS
     Indication: Decreased immune responsiveness
     Route: 050
     Dates: start: 20200501, end: 20230511
  3. ATORVASTATIN [Concomitant]
     Active Substance: ATORVASTATIN
     Indication: Blood cholesterol increased
     Route: 050
     Dates: end: 20230511

REACTIONS (2)
  - Multiple sclerosis relapse [Fatal]
  - Treatment failure [Unknown]

NARRATIVE: CASE EVENT DATE: 20230412
